FAERS Safety Report 10700322 (Version 3)
Quarter: 2015Q1

REPORT INFORMATION
  Report Type: Spontaneous
  Country: US (occurrence: US)
  Receive Date: 20150109
  Receipt Date: 20150303
  Transmission Date: 20150721
  Serious: Yes (Disabling, Other)
  Sender: FDA-Public Use
  Company Number: US-009507513-1204USA03751

PATIENT
  Sex: Male
  Weight: 82.54 kg

DRUGS (1)
  1. PROPECIA [Suspect]
     Active Substance: FINASTERIDE
     Indication: ANDROGENETIC ALOPECIA
     Dosage: 1 MG, QD
     Route: 048
     Dates: start: 1999, end: 20041207

REACTIONS (32)
  - Orchidectomy [Unknown]
  - Sexual dysfunction [Not Recovered/Not Resolved]
  - Depression [Not Recovered/Not Resolved]
  - Sperm concentration decreased [Unknown]
  - Nephrolithiasis [Unknown]
  - Testicular seminoma (pure) stage I [Unknown]
  - Libido decreased [Not Recovered/Not Resolved]
  - Erectile dysfunction [Recovering/Resolving]
  - Ejaculation disorder [Not Recovered/Not Resolved]
  - Ejaculation failure [Not Recovered/Not Resolved]
  - Pituitary tumour benign [Unknown]
  - Renal cyst [Unknown]
  - Drug ineffective [Unknown]
  - Penile prosthesis insertion [Unknown]
  - Palpitations [Unknown]
  - Hypogonadism [Unknown]
  - Hernia [Unknown]
  - Testicular microlithiasis [Unknown]
  - Cognitive disorder [Not Recovered/Not Resolved]
  - Weight fluctuation [Unknown]
  - Dehydroepiandrosterone increased [Unknown]
  - Epistaxis [Unknown]
  - Rash [Unknown]
  - Inguinal hernia repair [Unknown]
  - Hyperhidrosis [Unknown]
  - Gastrointestinal motility disorder [Unknown]
  - Penile prosthesis removal [Unknown]
  - Anxiety [Not Recovered/Not Resolved]
  - Burns second degree [Unknown]
  - Radiotherapy [Unknown]
  - Vision blurred [Unknown]
  - Implant site erosion [Unknown]

NARRATIVE: CASE EVENT DATE: 200406
